FAERS Safety Report 7256896-1 (Version None)
Quarter: 2011Q1

REPORT INFORMATION
  Report Type: 
  Country: None (occurrence: None)
  Receive Date: 20110129
  Receipt Date: 20100722
  Transmission Date: 20110831
  Serious: No
  Sender: FDA-Public Use
  Company Number: US-ABBOTT-10P-163-0659462-00

PATIENT
  Age: 51 Year
  Sex: Female

DRUGS (9)
  1. HUMIRA [Suspect]
     Indication: ANKYLOSING SPONDYLITIS
     Dates: start: 20100628
  2. NEXIUM [Concomitant]
     Indication: PRODUCT USED FOR UNKNOWN INDICATION
  3. SPIRONOLACTONE [Concomitant]
     Indication: JOINT SWELLING
  4. PERCOCET [Concomitant]
     Indication: PRODUCT USED FOR UNKNOWN INDICATION
     Dosage: 2-10/325MG TABS AS REQUIRED Q6 HOURS
  5. VITAMIN B [Concomitant]
     Indication: VITAMIN B12 DEFICIENCY
  6. DILTIAZEM [Concomitant]
     Indication: HYPERTENSION
     Dosage: 120 MG DAILY
  7. PREMPRO [Concomitant]
     Indication: HORMONE REPLACEMENT THERAPY
  8. VITAMIN D [Concomitant]
     Indication: VITAMIN SUPPLEMENTATION
  9. OXYCONTIN [Concomitant]
     Indication: PAIN

REACTIONS (12)
  - MIGRAINE [None]
  - THROAT IRRITATION [None]
  - DYSPNOEA [None]
  - BLISTER [None]
  - FLUSHING [None]
  - OROPHARYNGEAL PAIN [None]
  - PAIN [None]
  - ERYTHEMA [None]
  - COUGH [None]
  - CYSTITIS [None]
  - SWOLLEN TONGUE [None]
  - GLOSSODYNIA [None]
